FAERS Safety Report 9368782 (Version 1)
Quarter: 2013Q2

REPORT INFORMATION
  Report Type: Spontaneous
  Country: NO (occurrence: NO)
  Receive Date: 20130626
  Receipt Date: 20130626
  Transmission Date: 20140414
  Serious: Yes (Other)
  Sender: FDA-Public Use
  Company Number: NO-AMGEN-NORSP2013043857

PATIENT
  Age: 78 Year
  Sex: Male

DRUGS (1)
  1. XGEVA [Suspect]
     Indication: METASTASES TO PROSTATE
     Dosage: 120 MG, Q4WK
     Route: 058
     Dates: start: 20120322, end: 20121126

REACTIONS (1)
  - Osteonecrosis of jaw [Not Recovered/Not Resolved]
